FAERS Safety Report 16959142 (Version 10)
Quarter: 2020Q2

REPORT INFORMATION
  Report Type: Report from Study
  Country: US (occurrence: US)
  Receive Date: 20191024
  Receipt Date: 20200625
  Transmission Date: 20200713
  Serious: Yes (Other)
  Sender: FDA-Public Use
  Company Number: NVSC2019US015327

PATIENT
  Age: 36 Year
  Sex: Female
  Weight: 133.79 kg

DRUGS (7)
  1. TREPROSTINIL. [Suspect]
     Active Substance: TREPROSTINIL
     Dosage: 178 NG/KG/MIN, CONT
     Route: 042
     Dates: start: 20200219
  2. AMBRISENTAN [Concomitant]
     Active Substance: AMBRISENTAN
     Indication: PRODUCT USED FOR UNKNOWN INDICATION
     Dosage: UNK
     Route: 065
  3. TADALAFIL. [Concomitant]
     Active Substance: TADALAFIL
     Indication: PRODUCT USED FOR UNKNOWN INDICATION
     Dosage: UNK
     Route: 065
  4. TREPROSTINIL. [Suspect]
     Active Substance: TREPROSTINIL
     Indication: PULMONARY ARTERIAL HYPERTENSION
     Dosage: 178NG/KG/MIN, CONTINUOUS
     Route: 042
     Dates: start: 20190926
  5. TREPROSTINIL. [Suspect]
     Active Substance: TREPROSTINIL
     Dosage: 178NG/KG/MIN, CONTINUOUS
     Route: 042
     Dates: start: 20200219
  6. TREPROSTINIL. [Suspect]
     Active Substance: TREPROSTINIL
     Dosage: 178 NG/KG/MIN,CONT
     Route: 042
     Dates: start: 20200219
  7. TREPROSTINIL. [Suspect]
     Active Substance: TREPROSTINIL
     Dosage: 178NG/KG/MIN, CONT
     Route: 042
     Dates: start: 20200219

REACTIONS (16)
  - Gastroenteritis viral [Unknown]
  - Weight decreased [Unknown]
  - Headache [Unknown]
  - Pneumonia [Unknown]
  - Oxygen saturation decreased [Unknown]
  - Respiratory tract infection [Unknown]
  - Fluid retention [Unknown]
  - Nausea [Unknown]
  - Skin irritation [Unknown]
  - Diarrhoea [Unknown]
  - Sinusitis [Unknown]
  - Malaise [Unknown]
  - Asthma [Unknown]
  - Dyspnoea [Unknown]
  - Flushing [Unknown]
  - Nasopharyngitis [Not Recovered/Not Resolved]

NARRATIVE: CASE EVENT DATE: 201910
